FAERS Safety Report 5476842-0 (Version None)
Quarter: 2007Q4

REPORT INFORMATION
  Report Type: 
  Country: None (occurrence: None)
  Receive Date: 20071004
  Receipt Date: 20070925
  Transmission Date: 20080405
  Serious: Yes (Other)
  Sender: FDA-Public Use
  Company Number: US-ROCHE-515307

PATIENT

DRUGS (1)
  1. BONIVA [Suspect]
     Indication: DRUG USE FOR UNKNOWN INDICATION
     Route: 048
     Dates: end: 20070701

REACTIONS (4)
  - ADVERSE EVENT [None]
  - IMPAIRED HEALING [None]
  - POSTOPERATIVE WOUND INFECTION [None]
  - TOOTH EXTRACTION [None]
